FAERS Safety Report 7118175-2 (Version None)
Quarter: 2010Q4

REPORT INFORMATION
  Report Type: 
  Country: None (occurrence: None)
  Receive Date: 20101123
  Receipt Date: 20101115
  Transmission Date: 20110411
  Serious: Yes (Hospitalization)
  Sender: FDA-Public Use
  Company Number: US-JNJFOC-20100405442

PATIENT
  Sex: Female
  Weight: 78.93 kg

DRUGS (26)
  1. REMICADE [Suspect]
     Indication: RHEUMATOID ARTHRITIS
     Route: 042
  2. REMICADE [Suspect]
     Route: 042
  3. REMICADE [Suspect]
     Route: 042
  4. METHOTREXATE [Suspect]
     Indication: RHEUMATOID ARTHRITIS
     Route: 048
  5. PREDNISONE [Suspect]
     Indication: RHEUMATOID ARTHRITIS
     Route: 048
  6. PREDNISONE [Suspect]
     Route: 048
  7. PREDNISONE [Suspect]
     Route: 048
  8. ALPRAZOLAM [Suspect]
     Indication: ANXIETY
  9. PERCOCET [Suspect]
     Indication: PAIN
     Route: 048
  10. REMERON [Suspect]
     Indication: INSOMNIA
     Route: 048
  11. REMERON [Suspect]
     Indication: DEPRESSION
     Route: 048
  12. REMERON [Suspect]
     Indication: ANXIETY
     Route: 048
  13. ANTIBIOTIC NOS [Suspect]
     Indication: ILL-DEFINED DISORDER
  14. NOVOLOG [Concomitant]
     Route: 058
  15. FELODIPINE [Concomitant]
     Route: 048
  16. BENICAR [Concomitant]
     Route: 048
  17. MULTIPLE VITAMIN [Concomitant]
  18. PRILOSEC [Concomitant]
     Route: 048
  19. FOLIC ACID [Concomitant]
     Route: 048
  20. CALCIUM 600+D [Concomitant]
     Route: 048
  21. PROVENTIL HFA INHALANT [Concomitant]
     Indication: WHEEZING
     Route: 055
  22. PROVENTIL HFA INHALANT [Concomitant]
     Indication: DYSPNOEA
     Route: 055
  23. VITAMIN D [Concomitant]
     Route: 048
  24. TOPROL-XL [Concomitant]
     Route: 048
  25. SIMVASTATIN [Concomitant]
     Route: 048
  26. PREMARIN [Concomitant]

REACTIONS (26)
  - ACCIDENTAL EXPOSURE [None]
  - ACUTE RESPIRATORY FAILURE [None]
  - ADRENOCORTICAL INSUFFICIENCY ACUTE [None]
  - BLOOD ALBUMIN DECREASED [None]
  - BLOOD FOLATE INCREASED [None]
  - BLOOD GLUCOSE INCREASED [None]
  - BLOOD IRON DECREASED [None]
  - BLOOD PHOSPHORUS DECREASED [None]
  - BLOOD POTASSIUM DECREASED [None]
  - BLOOD THYROID STIMULATING HORMONE DECREASED [None]
  - DIARRHOEA [None]
  - DRUG INEFFECTIVE [None]
  - ELECTROCARDIOGRAM T WAVE ABNORMAL [None]
  - HAEMATOCRIT DECREASED [None]
  - HAEMOGLOBIN DECREASED [None]
  - HEADACHE [None]
  - HYPOVOLAEMIA [None]
  - INTENTIONAL DRUG MISUSE [None]
  - INTERSTITIAL LUNG DISEASE [None]
  - JOINT DISLOCATION [None]
  - MEAN CELL VOLUME INCREASED [None]
  - MULTIPLE DRUG OVERDOSE [None]
  - OPPORTUNISTIC INFECTION [None]
  - SEPTIC SHOCK [None]
  - TRANSFERRIN SATURATION DECREASED [None]
  - VITAMIN B12 INCREASED [None]
